FAERS Safety Report 19431384 (Version 1)
Quarter: 2021Q2

REPORT INFORMATION
  Report Type: Spontaneous
  Country: GB (occurrence: GB)
  Receive Date: 20210618
  Receipt Date: 20210618
  Transmission Date: 20210717
  Serious: Yes (Disabling, Other)
  Sender: FDA-Public Use
  Company Number: GB-SUN PHARMACEUTICAL INDUSTRIES LTD-2021RR-301037

PATIENT
  Age: 57 Year
  Sex: Female
  Weight: 82.55 kg

DRUGS (5)
  1. TRAZODONE [Suspect]
     Active Substance: TRAZODONE HYDROCHLORIDE
     Indication: ILL-DEFINED DISORDER
     Dosage: UNK, 600MG NOW REDUCED TO 150MG
     Route: 048
     Dates: start: 2001
  2. DEPIXOL (FLUPENTIXOL DIHYDROCHLORIDE) [Suspect]
     Active Substance: FLUPENTIXOL DIHYDROCHLORIDE
     Indication: ILL-DEFINED DISORDER
     Dosage: UNK, 9MG DAILY
     Route: 048
     Dates: start: 2001, end: 202008
  3. DEPAKOTE [Suspect]
     Active Substance: DIVALPROEX SODIUM
     Indication: ILL-DEFINED DISORDER
     Dosage: UNK, 500MG DAILY
     Route: 048
     Dates: start: 2016
  4. LITHIUM. [Suspect]
     Active Substance: LITHIUM
     Indication: ILL-DEFINED DISORDER
     Dosage: UNK, 800MG DAILY
     Route: 048
     Dates: start: 2002
  5. SERTRALINE [Suspect]
     Active Substance: SERTRALINE HYDROCHLORIDE
     Indication: ILL-DEFINED DISORDER
     Dosage: UNK, 100MG DAILY
     Route: 048
     Dates: start: 2000

REACTIONS (1)
  - Adverse drug reaction [Unknown]

NARRATIVE: CASE EVENT DATE: 2014
